FAERS Safety Report 6235962-3 (Version None)
Quarter: 2009Q2

REPORT INFORMATION
  Report Type: 
  Country: None (occurrence: None)
  Receive Date: 20090619
  Receipt Date: 20090616
  Transmission Date: 20091009
  Serious: Yes (Death, Hospitalization)
  Sender: FDA-Public Use
  Company Number: PHEH2009US06126

PATIENT
  Age: 76 Year
  Sex: Female

DRUGS (3)
  1. EXJADE [Suspect]
     Indication: ANAEMIA OF MALIGNANT DISEASE
     Dosage: 1250 MG, QD
     Route: 048
     Dates: end: 20070614
  2. EXJADE [Suspect]
     Indication: IRON OVERLOAD
  3. EXJADE [Suspect]
     Indication: ABDOMINAL NEOPLASM

REACTIONS (3)
  - MALIGNANT NEOPLASM PROGRESSION [None]
  - PANCREATIC CARCINOMA METASTATIC [None]
  - REFUSAL OF TREATMENT BY PATIENT [None]
